FAERS Safety Report 9837875 (Version 1)
Quarter: 2013Q4

REPORT INFORMATION
  Report Type: Spontaneous
  Country: US (occurrence: None)
  Receive Date: 20131205
  Receipt Date: 20131205
  Transmission Date: 20140711
  Serious: No
  Sender: FDA-Public Use
  Company Number: 163-POMAL-13040177

PATIENT
  Age: 74 Year
  Sex: Female
  Weight: 56.25 kg

DRUGS (10)
  1. POMALYST (POMALIDOMIDE) (2 MILLIGRAM, CAPSULES) [Suspect]
     Indication: PLASMA CELL MYELOMA
     Route: 048
     Dates: start: 20130319, end: 2013
  2. DEXAMETHASONE (DEXAMETHASONE) [Concomitant]
  3. ABILIFY (ARIPIPRAZOLE) [Concomitant]
  4. ACIPHEX (RABEPRAZOLE SODIUM) [Concomitant]
  5. ASMANEX (MOMETASONE FUROATE) [Concomitant]
  6. BENADRYL (DIPHENHYDRAMINE) [Concomitant]
  7. BIOTIN (BIOTIN) [Concomitant]
  8. BUPROPION (HCL (BUPROPION HYDROCHLORIDE) [Concomitant]
  9. CALCIUM (CALCIUM) [Concomitant]
  10. ENABLEX (DARIFENACIN HYDROBROMIDE) [Concomitant]

REACTIONS (4)
  - Abdominal discomfort [None]
  - Headache [None]
  - Tremor [None]
  - Drug ineffective [None]
